FAERS Safety Report 9352447 (Version 2)
Quarter: 2013Q2

REPORT INFORMATION
  Report Type: Spontaneous
  Country: US (occurrence: US)
  Receive Date: 20130617
  Receipt Date: 20130621
  Transmission Date: 20140414
  Serious: Yes (Hospitalization, Other)
  Sender: FDA-Public Use
  Company Number: US-BAXTER-2013BAX022231

PATIENT
  Age: 65 Year
  Sex: Female

DRUGS (4)
  1. DIANEAL LOW CALCIUM [Suspect]
     Indication: PERITONEAL DIALYSIS
     Route: 033
     Dates: start: 201208, end: 20120927
  2. DIANEAL LOW CALCIUM [Suspect]
     Route: 033
     Dates: start: 20130607
  3. EXTRANEAL [Suspect]
     Indication: PERITONEAL DIALYSIS
     Route: 033
     Dates: start: 201208, end: 20120927
  4. EXTRANEAL [Suspect]
     Route: 033
     Dates: start: 20130607

REACTIONS (2)
  - Fall [Unknown]
  - Pelvic fracture [Recovering/Resolving]
